FAERS Safety Report 22323589 (Version 1)
Quarter: 2023Q2

REPORT INFORMATION
  Report Type: Spontaneous
  Country: KR (occurrence: None)
  Receive Date: 20230516
  Receipt Date: 20230516
  Transmission Date: 20230721
  Serious: Yes (Other)
  Sender: FDA-Public Use
  Company Number: 2023A108416

PATIENT

DRUGS (6)
  1. IRESSA [Suspect]
     Active Substance: GEFITINIB
     Route: 048
     Dates: start: 2012
  2. TAGRISSO [Suspect]
     Active Substance: OSIMERTINIB
     Route: 048
     Dates: start: 20160614, end: 201805
  3. CISPLATIN [Concomitant]
     Active Substance: CISPLATIN
  4. AFATINIB [Concomitant]
     Active Substance: AFATINIB
  5. GEMCITABINE [Concomitant]
     Active Substance: GEMCITABINE
  6. ATEZOLIZUMAB [Concomitant]
     Active Substance: ATEZOLIZUMAB
     Dates: start: 20200521, end: 20220602

REACTIONS (2)
  - Malignant neoplasm progression [Unknown]
  - Acquired gene mutation [Unknown]
